FAERS Safety Report 5215260-7 (Version None)
Quarter: 2007Q1

REPORT INFORMATION
  Report Type: 
  Country: None (occurrence: None)
  Receive Date: 20061122
  Receipt Date: 20051104
  Transmission Date: 20070707
  Serious: Yes (Hospitalization)
  Sender: FDA-Public Use
  Company Number: HQWYE435407NOV05

PATIENT
  Age: 87 Year
  Sex: Female

DRUGS (2)
  1. ZOSYN [Suspect]
     Indication: BACTERAEMIA
     Dosage: INTRAVENOUS
     Route: 042
     Dates: start: 20051102
  2. VANCOMYCIN [Concomitant]

REACTIONS (1)
  - THROMBOCYTOPENIA [None]
